FAERS Safety Report 10762676 (Version 1)
Quarter: 2015Q1

REPORT INFORMATION
  Report Type: Spontaneous
  Country: CN (occurrence: CN)
  Receive Date: 20150204
  Receipt Date: 20150204
  Transmission Date: 20150721
  Serious: Yes (Hospitalization)
  Sender: FDA-Public Use
  Company Number: CN-BAYER-2015-013985

PATIENT

DRUGS (1)
  1. BAYASPIRIN [Suspect]
     Active Substance: ASPIRIN
     Dosage: UNK

REACTIONS (8)
  - Breath sounds abnormal [None]
  - Decreased appetite [None]
  - Pyrexia [None]
  - Abdominal discomfort [None]
  - Palpitations [None]
  - Flushing [None]
  - Blood urine present [None]
  - Chromaturia [None]
